FAERS Safety Report 8372948-7 (Version None)
Quarter: 2012Q2

REPORT INFORMATION
  Report Type: 
  Country: None (occurrence: None)
  Receive Date: 20120521
  Receipt Date: 20111229
  Transmission Date: 20120825
  Serious: No
  Sender: FDA-Public Use
  Company Number: US-ASTRAZENECA-2012SE05098

PATIENT
  Age: 34 Year

DRUGS (2)
  1. PRILOSEC OTC [Suspect]
     Route: 048
  2. PAROXETINE [Concomitant]
     Dosage: UNKNOWN

REACTIONS (1)
  - PHARYNGEAL MASS [None]
